FAERS Safety Report 17753512 (Version 1)
Quarter: 2020Q2

REPORT INFORMATION
  Report Type: Spontaneous
  Country: US (occurrence: US)
  Receive Date: 20200506
  Receipt Date: 20200506
  Transmission Date: 20200714
  Serious: No
  Sender: FDA-Public Use
  Company Number: US-ROCHE-2548349

PATIENT
  Sex: Male

DRUGS (10)
  1. ESBRIET [Suspect]
     Active Substance: PIRFENIDONE
     Indication: TYPE IIA HYPERLIPIDAEMIA
     Dosage: TAKE 3 TAB BY MOUTH THREE TIMES A DAY WITH MEAL
     Route: 048
     Dates: start: 20191120
  2. AMLODIPINE BESYLATE. [Concomitant]
     Active Substance: AMLODIPINE BESYLATE
  3. DUTASTERIDE. [Concomitant]
     Active Substance: DUTASTERIDE
  4. PANTOPRAZOLE SODIUM. [Concomitant]
     Active Substance: PANTOPRAZOLE SODIUM
  5. CLOPIDOGREL BISULFATE. [Concomitant]
     Active Substance: CLOPIDOGREL BISULFATE
  6. TRIAMTERENE HCTZ [Concomitant]
     Active Substance: HYDROCHLOROTHIAZIDE\TRIAMTERENE
  7. GABAPENTIN. [Concomitant]
     Active Substance: GABAPENTIN
  8. DIGOXIN. [Concomitant]
     Active Substance: DIGOXIN
  9. ATORVASTATIN CALCIUM. [Concomitant]
     Active Substance: ATORVASTATIN CALCIUM
  10. METOPROLOL SUCCINATE. [Concomitant]
     Active Substance: METOPROLOL SUCCINATE

REACTIONS (3)
  - Off label use [Unknown]
  - Decreased appetite [Unknown]
  - Intentional product use issue [Unknown]
